FAERS Safety Report 11267213 (Version 11)
Quarter: 2018Q1

REPORT INFORMATION
  Report Type: Spontaneous
  Country: US (occurrence: US)
  Receive Date: 20150713
  Receipt Date: 20180125
  Transmission Date: 20180508
  Serious: Yes (Other)
  Sender: FDA-Public Use
  Company Number: US-ASTELLAS-2015US024601

PATIENT
  Age: 79 Year
  Sex: Female

DRUGS (15)
  1. TARCEVA [Suspect]
     Active Substance: ERLOTINIB HYDROCHLORIDE
     Indication: BRONCHIOLOALVEOLAR CARCINOMA
     Route: 048
     Dates: start: 201502
  2. TARCEVA [Suspect]
     Active Substance: ERLOTINIB HYDROCHLORIDE
     Dosage: THREE 25 MG TABLETS ONCE DAILYDALIY FOR 3 WEEKS FOLLOWED BY 1 WEEK OFF
  3. TARCEVA [Suspect]
     Active Substance: ERLOTINIB HYDROCHLORIDE
     Dosage: 3 TABS QD X 3 WKS
     Route: 048
     Dates: start: 201509
  4. BABY ASPIRIN [Concomitant]
     Active Substance: ASPIRIN
     Indication: PRODUCT USED FOR UNKNOWN INDICATION
     Dosage: UNK UNK, UNKNOWN FREQ.
     Route: 065
  5. TARCEVA [Suspect]
     Active Substance: ERLOTINIB HYDROCHLORIDE
     Indication: BREAST CANCER FEMALE
     Route: 048
     Dates: start: 201410, end: 201503
  6. TARCEVA [Suspect]
     Active Substance: ERLOTINIB HYDROCHLORIDE
     Route: 048
     Dates: start: 20170913
  7. TARCEVA [Suspect]
     Active Substance: ERLOTINIB HYDROCHLORIDE
     Dosage: FOR 21 DAYS AND THEN 7 DAYS OFF
     Route: 048
     Dates: start: 201508
  8. TARCEVA [Suspect]
     Active Substance: ERLOTINIB HYDROCHLORIDE
     Route: 048
     Dates: start: 20151210
  9. SIMVASTATIN. [Suspect]
     Active Substance: SIMVASTATIN
     Dosage: 20 MG, UNKNOWN FREQ.
     Route: 048
  10. SIMVASTATIN. [Suspect]
     Active Substance: SIMVASTATIN
     Route: 048
  11. TARCEVA [Suspect]
     Active Substance: ERLOTINIB HYDROCHLORIDE
     Indication: LUNG NEOPLASM MALIGNANT
     Dosage: DAILY FOR 3 WEEKS FOLLOWED BY 1 WEEK OFF
     Route: 048
     Dates: start: 20141111
  12. PLAVIX [Concomitant]
     Active Substance: CLOPIDOGREL BISULFATE
     Indication: PRODUCT USED FOR UNKNOWN INDICATION
     Dosage: UNK UNK, UNKNOWN FREQ.
     Route: 065
  13. SIMVASTATIN. [Suspect]
     Active Substance: SIMVASTATIN
     Indication: PRODUCT USED FOR UNKNOWN INDICATION
     Dosage: 20 MG, UNKNOWN FREQ.
     Route: 048
  14. BACITRACIN. [Concomitant]
     Active Substance: BACITRACIN
     Indication: PRODUCT USED FOR UNKNOWN INDICATION
     Dosage: UNK UNK, UNKNOWN FREQ.
     Route: 065
  15. TARCEVA [Suspect]
     Active Substance: ERLOTINIB HYDROCHLORIDE
     Route: 048
     Dates: start: 201503, end: 201506

REACTIONS (39)
  - Urine output increased [Not Recovered/Not Resolved]
  - Nasal dryness [Not Recovered/Not Resolved]
  - Sinusitis [Unknown]
  - Rash [Recovered/Resolved]
  - Diarrhoea [Unknown]
  - Macular degeneration [Unknown]
  - Clavicle fracture [Unknown]
  - Spinal compression fracture [Unknown]
  - Cardiac disorder [Not Recovered/Not Resolved]
  - Alopecia [Recovered/Resolved]
  - Vascular occlusion [Unknown]
  - Nasal discomfort [Not Recovered/Not Resolved]
  - Eyelid infection [Unknown]
  - Eye infection [Recovering/Resolving]
  - Red blood cell count increased [Not Recovered/Not Resolved]
  - Laceration [Not Recovered/Not Resolved]
  - Nasal crusting [Unknown]
  - Nail infection [Not Recovered/Not Resolved]
  - Diarrhoea [Recovering/Resolving]
  - Platelet count increased [Not Recovered/Not Resolved]
  - Alopecia [Unknown]
  - Blepharitis [Unknown]
  - Eye irritation [Not Recovered/Not Resolved]
  - Dry mouth [Unknown]
  - Dyspnoea [Unknown]
  - Haematological malignancy [Unknown]
  - Torticollis [Not Recovered/Not Resolved]
  - Muscle disorder [Unknown]
  - Hair growth abnormal [Unknown]
  - Nasal discomfort [Unknown]
  - Injection site pain [Unknown]
  - Eye inflammation [Unknown]
  - Dry eye [Unknown]
  - Epistaxis [Not Recovered/Not Resolved]
  - Stomatitis [Recovering/Resolving]
  - Pulmonary hypertension [Unknown]
  - Rectal haemorrhage [Unknown]
  - Haemorrhoids [Unknown]
  - Eye discharge [Unknown]

NARRATIVE: CASE EVENT DATE: 20141117
